FAERS Safety Report 9961284 (Version 3)
Quarter: 2014Q2

REPORT INFORMATION
  Report Type: Report from Study
  Country: DE (occurrence: DE)
  Receive Date: 20140305
  Receipt Date: 20140512
  Transmission Date: 20141212
  Serious: Yes (Other)
  Sender: FDA-Public Use
  Company Number: DE-SA-2014SA026178

PATIENT
  Age: 44 Year
  Sex: Female
  Weight: 89 kg

DRUGS (8)
  1. ZALTRAP [Suspect]
     Indication: COLORECTAL CANCER
     Route: 042
     Dates: start: 20140107, end: 20140107
  2. ZALTRAP [Suspect]
     Indication: COLORECTAL CANCER
     Route: 042
     Dates: start: 20140220, end: 20140220
  3. FOLINIC ACID [Concomitant]
     Indication: COLORECTAL CANCER
     Dates: start: 20140107, end: 20140107
  4. FOLINIC ACID [Concomitant]
     Indication: COLORECTAL CANCER
     Dates: start: 20140220, end: 20140220
  5. 5-FU [Concomitant]
     Indication: COLORECTAL CANCER
     Dates: start: 20140107, end: 20140107
  6. 5-FU [Concomitant]
     Indication: COLORECTAL CANCER
     Dates: start: 20140220, end: 20140220
  7. IRINOTECAN [Concomitant]
     Indication: COLORECTAL CANCER
     Dates: start: 20140107, end: 20140107
  8. IRINOTECAN [Concomitant]
     Indication: COLORECTAL CANCER
     Dates: start: 20140220, end: 20140220

REACTIONS (3)
  - Retinopathy [Recovered/Resolved]
  - Retinal oedema [Recovered/Resolved]
  - Diplopia [Recovered/Resolved]
